FAERS Safety Report 7026622-X (Version None)
Quarter: 2010Q4

REPORT INFORMATION
  Report Type: 
  Country: None (occurrence: None)
  Receive Date: 20101004
  Receipt Date: 20100924
  Transmission Date: 20110411
  Serious: Yes (Other)
  Sender: FDA-Public Use
  Company Number: US-JNJFOC-20101000336

PATIENT
  Sex: Female

DRUGS (2)
  1. LEVAQUIN [Suspect]
     Indication: PNEUMONIA
     Route: 042
  2. COMBIVENT [Concomitant]
     Indication: LUNG DISORDER
     Route: 065

REACTIONS (2)
  - OXYGEN SUPPLEMENTATION [None]
  - WEIGHT DECREASED [None]
